FAERS Safety Report 4644447-7 (Version None)
Quarter: 2005Q2

REPORT INFORMATION
  Report Type: 
  Country: None (occurrence: None)
  Receive Date: 20050331
  Receipt Date: 20041201
  Transmission Date: 20051028
  Serious: No
  Sender: FDA-Public Use
  Company Number: 04P-163-0282272-00

PATIENT
  Age: 80 Year
  Sex: Male
  Weight: 87.9978 kg

DRUGS (23)
  1. HUMIRA [Suspect]
     Indication: RHEUMATOID ARTHRITIS
     Dosage: 40 MG, 1 IN 2 WK, SUBCUTANEOUS
     Route: 058
     Dates: start: 20031001, end: 20040901
  2. METHOTREXATE [Concomitant]
  3. IMDUR [Concomitant]
  4. CYPROHEPTADINE HYDROCHLORIDE [Concomitant]
  5. LISINOPRIL [Concomitant]
  6. ATORVASTATIN CALCIUM [Concomitant]
  7. ECTOIN [Concomitant]
  8. PREDNISONE [Concomitant]
  9. NAPROXEN [Concomitant]
  10. FOLIC ACID [Concomitant]
  11. CARVEDILOL [Concomitant]
  12. VITAMINS [Concomitant]
  13. ASPIRIN [Concomitant]
  14. ASCORBIC ACID [Concomitant]
  15. MULTI-VITAMINS [Concomitant]
  16. CALCIUM GLUCONATE [Concomitant]
  17. VITAMINS [Concomitant]
  18. INSULIN HUMAN [Concomitant]
  19. LIDOCAINE [Concomitant]
  20. OXYCODONE HCL [Concomitant]
  21. FUROSEMIDE [Concomitant]
  22. INSULIN GLARGINE [Concomitant]
  23. NITROFURANTOIN [Concomitant]

REACTIONS (1)
  - SKIN ULCER [None]
